FAERS Safety Report 9214217 (Version 1)
Quarter: 2013Q2

REPORT INFORMATION
  Report Type: Spontaneous
  Country: US (occurrence: None)
  Receive Date: 20130404
  Receipt Date: 20130404
  Transmission Date: 20140414
  Serious: No
  Sender: FDA-Public Use
  Company Number: None

PATIENT
  Age: 77 Year
  Sex: Female
  Weight: 78.47 kg

DRUGS (3)
  1. CLOPIDOGREL [Suspect]
     Indication: STENT PLACEMENT
     Dosage: 7.5 MG (1) AT BEDTIME ORAL?TRIED AGAIN JULY - ?
     Route: 048
     Dates: start: 20120605, end: 20120625
  2. CLOPIDOGREL [Suspect]
     Indication: CEREBROVASCULAR ACCIDENT
     Dosage: 7.5 MG (1) AT BEDTIME ORAL?TRIED AGAIN JULY - ?
     Route: 048
     Dates: start: 20120605, end: 20120625
  3. CLOPIDOGREL [Suspect]
     Indication: CARDIAC FAILURE
     Dosage: 7.5 MG (1) AT BEDTIME ORAL?TRIED AGAIN JULY - ?
     Route: 048
     Dates: start: 20120605, end: 20120625

REACTIONS (2)
  - Product substitution issue [None]
  - Blood viscosity increased [None]
